FAERS Safety Report 24231501 (Version 1)
Quarter: 2024Q3

REPORT INFORMATION
  Report Type: Spontaneous
  Country: ZA (occurrence: ZA)
  Receive Date: 20240821
  Receipt Date: 20240821
  Transmission Date: 20241017
  Serious: Yes (Other)
  Sender: CELLTRION
  Company Number: ZA-CELLTRION INC.-2023ZA004889

PATIENT

DRUGS (4)
  1. INFLIXIMAB [Suspect]
     Active Substance: INFLIXIMAB
     Indication: Rheumatoid arthritis
     Dosage: 400 MG, 8 WEEKLY INTERVALS
     Route: 042
     Dates: start: 20220329, end: 20230209
  2. INFLIXIMAB [Suspect]
     Active Substance: INFLIXIMAB
     Dosage: 400 MG, 8 WEEKLY INTERVALS
     Route: 042
     Dates: start: 20220329
  3. INFLIXIMAB [Suspect]
     Active Substance: INFLIXIMAB
     Dosage: 6 WEEKLY INFUSIONS (NOT STARTED ON 6 WEEKLY YET)
     Route: 042
  4. METHOTREXATE [Concomitant]
     Active Substance: METHOTREXATE
     Dosage: 15 MG

REACTIONS (5)
  - Shoulder operation [Recovering/Resolving]
  - Condition aggravated [Unknown]
  - Breakthrough pain [Unknown]
  - Intentional product use issue [Unknown]
  - Intentional dose omission [Recovering/Resolving]

NARRATIVE: CASE EVENT DATE: 20230724
